FAERS Safety Report 9335169 (Version 1)
Quarter: 2013Q2

REPORT INFORMATION
  Report Type: Spontaneous
  Country: GB (occurrence: GB)
  Receive Date: 20130606
  Receipt Date: 20130606
  Transmission Date: 20140414
  Serious: Yes (Disabling)
  Sender: FDA-Public Use
  Company Number: GB-PFIZER INC-2013170733

PATIENT
  Age: 35 Year
  Sex: Female

DRUGS (2)
  1. PREGABALIN [Suspect]
     Dosage: UNK
     Dates: start: 20130402
  2. METHADONE [Concomitant]
     Dosage: UNK
     Dates: start: 20130214, end: 20130403

REACTIONS (2)
  - Drug dependence [Not Recovered/Not Resolved]
  - Withdrawal syndrome [Unknown]
